FAERS Safety Report 9344065 (Version 1)
Quarter: 2013Q2

REPORT INFORMATION
  Report Type: Spontaneous
  Country: SE (occurrence: SE)
  Receive Date: 20130612
  Receipt Date: 20130612
  Transmission Date: 20140414
  Serious: Yes (Hospitalization)
  Sender: FDA-Public Use
  Company Number: SE-PFIZER INC-2013169331

PATIENT
  Age: 82 Year
  Sex: Female

DRUGS (1)
  1. SALAZOPYRIN [Suspect]
     Dosage: UNK
     Dates: start: 2012

REACTIONS (4)
  - Weight decreased [Unknown]
  - Iron deficiency anaemia [Unknown]
  - Cough [Unknown]
  - Nausea [Unknown]
